FAERS Safety Report 8665670 (Version 4)
Quarter: 2012Q4

REPORT INFORMATION
  Report Type: 
  Country: US (occurrence: US)
  Receive Date: 20120716
  Receipt Date: 20121113
  Transmission Date: 20130627
  Serious: No
  Sender: FDA-Public Use
  Company Number: US-PFIZER INC-2012167851

PATIENT
  Age: 62 Year
  Sex: Male

DRUGS (2)
  1. CELEBREX [Suspect]
     Dosage: 200 mg, 2x/day
     Route: 048
     Dates: start: 2010, end: 2012
  2. LYRICA [Suspect]
     Dosage: UNK

REACTIONS (2)
  - Fibromyalgia [Unknown]
  - Drug ineffective [Unknown]
